FAERS Safety Report 9012801 (Version 4)
Quarter: 2013Q3

REPORT INFORMATION
  Report Type: Report from Study
  Country: CA (occurrence: CA)
  Receive Date: 20130114
  Receipt Date: 20130715
  Transmission Date: 20140515
  Serious: Yes (Other)
  Sender: FDA-Public Use
  Company Number: CA-ABBOTT-13P-028-1034418-00

PATIENT
  Age: 18 Year
  Sex: Male

DRUGS (5)
  1. HUMIRA [Suspect]
     Indication: CROHN^S DISEASE
     Route: 058
     Dates: start: 20121030, end: 201212
  2. HUMIRA [Suspect]
     Route: 058
     Dates: start: 20130109
  3. ANTIDEPRESSANTS [Concomitant]
     Indication: DEPRESSION
  4. PREDNISONE [Concomitant]
     Indication: PRODUCT USED FOR UNKNOWN INDICATION
     Route: 042
     Dates: start: 201212
  5. CIPRALEX [Concomitant]
     Indication: DEPRESSION
     Dates: start: 20130616

REACTIONS (3)
  - Loss of consciousness [Unknown]
  - Drug abuse [Unknown]
  - Drug ineffective [Unknown]
